FAERS Safety Report 9602963 (Version 2)
Quarter: 2013Q4

REPORT INFORMATION
  Report Type: Spontaneous
  Country: US (occurrence: None)
  Receive Date: 20131003
  Receipt Date: 20131018
  Transmission Date: 20140711
  Serious: Yes (Hospitalization, Other)
  Sender: FDA-Public Use
  Company Number: ADR-2013-01768

PATIENT
  Age: 68 Year
  Sex: Male

DRUGS (2)
  1. BACLOFEN [Suspect]
     Indication: PAIN
  2. DILAUDID [Suspect]

REACTIONS (7)
  - Vomiting [None]
  - Diarrhoea [None]
  - Haematochezia [None]
  - Tremor [None]
  - Implant site pain [None]
  - Anxiety [None]
  - Pruritus [None]
